FAERS Safety Report 5166654-X (Version None)
Quarter: 2006Q4

REPORT INFORMATION
  Report Type: 
  Country: None (occurrence: None)
  Receive Date: 20061130
  Receipt Date: 20061130
  Transmission Date: 20070319
  Serious: Yes (Other)
  Sender: FDA-Public Use
  Company Number: None

PATIENT
  Age: 53 Year
  Sex: Male

DRUGS (5)
  1. NIACIN [Suspect]
     Dates: start: 20050301, end: 20050811
  2. WELLBUTRIN XL [Concomitant]
  3. LEXAPRO [Concomitant]
  4. DEXTROAMPHETAMINE [Concomitant]
  5. PRILOSEC [Concomitant]

REACTIONS (9)
  - ABDOMINAL PAIN UPPER [None]
  - BIOPSY LIVER ABNORMAL [None]
  - DECREASED APPETITE [None]
  - FATIGUE [None]
  - FLUSHING [None]
  - HEPATIC TRAUMA [None]
  - HEPATOCELLULAR DAMAGE [None]
  - NAUSEA [None]
  - WEIGHT DECREASED [None]
